FAERS Safety Report 7230849-1 (Version None)
Quarter: 2011Q1

REPORT INFORMATION
  Report Type: 
  Country: None (occurrence: None)
  Receive Date: 20110118
  Receipt Date: 20110112
  Transmission Date: 20110831
  Serious: Yes (Other)
  Sender: FDA-Public Use
  Company Number: CA-ROCHE-615706

PATIENT
  Sex: Female
  Weight: 85.5 kg

DRUGS (14)
  1. TOCILIZUMAB [Suspect]
     Indication: RHEUMATOID ARTHRITIS
     Dosage: REPORTED FORM: INFUSION AND SOLUTION. DOSE : 684.8 MG.
     Route: 042
     Dates: start: 20081210
  2. METHOTREXATE [Suspect]
     Indication: RHEUMATOID ARTHRITIS
     Route: 058
  3. FOLIC ACID [Concomitant]
     Dates: start: 19960101
  4. GLUCOSAMINE [Concomitant]
     Dates: start: 20070101, end: 20081210
  5. VITAMIN TAB [Concomitant]
     Dosage: REPORTED TDD: 1 TABLET.
     Dates: start: 20070101
  6. TOCILIZUMAB [Suspect]
     Dosage: PERMANENTLY DISCONTINUED ON 19 FEB 09.
     Route: 042
     Dates: end: 20090219
  7. IMOVANE [Concomitant]
     Dates: start: 20050101
  8. NON-STEROIDAL ANTI-INFLAMMATORY NOS [Concomitant]
     Route: 002
  9. TOCILIZUMAB [Suspect]
     Route: 042
     Dates: start: 20090107
  10. TOCILIZUMAB [Suspect]
     Route: 042
     Dates: start: 20090204
  11. SULFASALAZINE [Concomitant]
     Dates: start: 19960601
  12. CELEBREX [Concomitant]
     Dates: start: 20010101
  13. ACETAMINOPHEN [Concomitant]
     Dates: start: 19960101
  14. DMARD [Concomitant]
     Dosage: REPORTED AS : OTHER DMARDS
     Route: 002

REACTIONS (2)
  - HYPERSENSITIVITY [None]
  - SYNCOPE [None]
